FAERS Safety Report 17867847 (Version 1)
Quarter: 2020Q2

REPORT INFORMATION
  Report Type: Spontaneous
  Country: US (occurrence: US)
  Receive Date: 20200606
  Receipt Date: 20200606
  Transmission Date: 20200714
  Serious: Yes (Life-Threatening, Hospitalization, Other)
  Sender: FDA-Public Use
  Company Number: US-AUROBINDO-AUR-APL-2020-026850

PATIENT
  Age: 29 Year
  Sex: Male

DRUGS (1)
  1. DIVALPROEX [Suspect]
     Active Substance: DIVALPROEX SODIUM
     Indication: PRODUCT USED FOR UNKNOWN INDICATION
     Dosage: UNK (MASSIVE OVERDOSE)
     Route: 048

REACTIONS (5)
  - Delirium [Recovering/Resolving]
  - Coma [Recovering/Resolving]
  - Drug level increased [Recovering/Resolving]
  - Overdose [Recovering/Resolving]
  - Hyperammonaemia [Recovering/Resolving]
